FAERS Safety Report 5458454-8 (Version None)
Quarter: 2007Q3

REPORT INFORMATION
  Report Type: 
  Country: None (occurrence: None)
  Receive Date: 20070919
  Receipt Date: 20070622
  Transmission Date: 20080115
  Serious: Yes (Other)
  Sender: FDA-Public Use
  Company Number: US-ASTRAZENECA-2007UW06708

PATIENT
  Age: 8 Year
  Sex: Male
  Weight: 26.4 kg

DRUGS (6)
  1. SEROQUEL [Suspect]
     Route: 048
  2. SEROQUEL [Suspect]
     Route: 048
     Dates: start: 20070305
  3. ABILIFY [Concomitant]
     Dates: end: 20070305
  4. CONCERTA [Concomitant]
     Indication: ATTENTION DEFICIT/HYPERACTIVITY DISORDER
     Route: 048
  5. TENEX [Concomitant]
     Indication: ATTENTION DEFICIT/HYPERACTIVITY DISORDER
     Route: 048
  6. RITALIN [Concomitant]
     Indication: ATTENTION DEFICIT/HYPERACTIVITY DISORDER
     Route: 048

REACTIONS (2)
  - CONVULSION [None]
  - DYSKINESIA [None]
